FAERS Safety Report 14575982 (Version 1)
Quarter: 2018Q1

REPORT INFORMATION
  Report Type: Spontaneous
  Country: SE (occurrence: SE)
  Receive Date: 20180227
  Receipt Date: 20180227
  Transmission Date: 20180509
  Serious: Yes (Hospitalization, Other)
  Sender: FDA-Public Use
  Company Number: SE-ASTRAZENECA-2018SE22007

PATIENT
  Age: 61 Year
  Sex: Female

DRUGS (1)
  1. IRESSA [Suspect]
     Active Substance: GEFITINIB
     Indication: LUNG NEOPLASM MALIGNANT
     Route: 048
     Dates: start: 201509

REACTIONS (5)
  - Cerebral atrophy [Unknown]
  - Pain [Unknown]
  - Personality change [Unknown]
  - Decreased appetite [Unknown]
  - Ileus [Unknown]

NARRATIVE: CASE EVENT DATE: 2017
